FAERS Safety Report 25516979 (Version 3)
Quarter: 2025Q3

REPORT INFORMATION
  Report Type: Spontaneous
  Country: US (occurrence: US)
  Receive Date: 20250704
  Receipt Date: 20250807
  Transmission Date: 20251020
  Serious: No
  Sender: JOHNSON AND JOHNSON
  Company Number: US-JNJFOC-20250703134

PATIENT
  Sex: Female

DRUGS (1)
  1. GUSELKUMAB [Suspect]
     Active Substance: GUSELKUMAB
     Indication: Eczema
     Route: 065

REACTIONS (3)
  - Device issue [Unknown]
  - Product dose omission issue [Unknown]
  - Off label use [Unknown]
